FAERS Safety Report 12559310 (Version 3)
Quarter: 2016Q3

REPORT INFORMATION
  Report Type: Other
  Country: US (occurrence: US)
  Receive Date: 20160715
  Receipt Date: 20160930
  Transmission Date: 20161109
  Serious: No
  Sender: FDA-Public Use
  Company Number: US-LUPIN PHARMACEUTICALS INC.-E2B_00005670

PATIENT
  Age: 5 Year
  Sex: Female
  Weight: 18.16 kg

DRUGS (1)
  1. CEPHALEXIN FOR ORAL SUSPENSION USP 250 MG/5 ML [Suspect]
     Active Substance: CEPHALEXIN
     Indication: STREPTOCOCCAL INFECTION
     Dosage: 2 TEAPOON
     Route: 048
     Dates: start: 20160523, end: 20160601

REACTIONS (2)
  - No adverse event [Unknown]
  - Product packaging quantity issue [Unknown]

NARRATIVE: CASE EVENT DATE: 20160523
